FAERS Safety Report 8158134-4 (Version None)
Quarter: 2012Q1

REPORT INFORMATION
  Report Type: 
  Country: None (occurrence: None)
  Receive Date: 20120222
  Receipt Date: 20120214
  Transmission Date: 20120608
  Serious: Yes (Other)
  Sender: FDA-Public Use
  Company Number: PHHY2012FI014529

PATIENT

DRUGS (1)
  1. BROMOCRIPTINE MESYLATE [Suspect]
     Indication: PARKINSON'S DISEASE

REACTIONS (1)
  - PATHOLOGICAL GAMBLING [None]
